FAERS Safety Report 16774888 (Version 1)
Quarter: 2019Q3

REPORT INFORMATION
  Report Type: Spontaneous
  Country: GB (occurrence: GB)
  Receive Date: 20190905
  Receipt Date: 20190905
  Transmission Date: 20191005
  Serious: Yes (Other)
  Sender: FDA-Public Use
  Company Number: GB-TEVA-2019-GB-1101264

PATIENT
  Age: 39 Year
  Sex: Male
  Weight: 75 kg

DRUGS (4)
  1. DIAMORPHINE [Concomitant]
     Active Substance: DIAMORPHINE
  2. SPICE [Concomitant]
  3. COCAINE [Concomitant]
     Active Substance: COCAINE
  4. BUPRENORPHINE. [Suspect]
     Active Substance: BUPRENORPHINE
     Dosage: 6 MG
     Route: 060
     Dates: start: 20190606

REACTIONS (3)
  - Feeling abnormal [Unknown]
  - Pruritus [Unknown]
  - Formication [Unknown]

NARRATIVE: CASE EVENT DATE: 20190625
